FAERS Safety Report 16426239 (Version 1)
Quarter: 2019Q2

REPORT INFORMATION
  Report Type: Spontaneous
  Country: NL (occurrence: NL)
  Receive Date: 20190613
  Receipt Date: 20190613
  Transmission Date: 20190711
  Serious: Yes (Other)
  Sender: FDA-Public Use
  Company Number: NL-TEVA-2019-NL-1062065

PATIENT
  Age: 72 Year
  Sex: Female
  Weight: 115 kg

DRUGS (1)
  1. SPIRONOLACTONE TABLET 100 MILLIGRAMS (100 MG) [Suspect]
     Active Substance: SPIRONOLACTONE

REACTIONS (1)
  - Acute kidney injury [Unknown]
